FAERS Safety Report 18782867 (Version 2)
Quarter: 2022Q1

REPORT INFORMATION
  Report Type: Spontaneous
  Country: US (occurrence: US)
  Receive Date: 20210125
  Receipt Date: 20220303
  Transmission Date: 20220424
  Serious: No
  Sender: FDA-Public Use
  Company Number: US-ALLERGAN-2100247US

PATIENT
  Sex: Female

DRUGS (2)
  1. RESTASIS [Suspect]
     Active Substance: CYCLOSPORINE
     Indication: Dry eye
     Dosage: 2 GTT, BID
     Route: 065
  2. CLARITIN                           /00413701/ [Concomitant]

REACTIONS (3)
  - Ocular hyperaemia [Unknown]
  - Eye irritation [Unknown]
  - Drug ineffective [Unknown]
